FAERS Safety Report 10376748 (Version 1)
Quarter: 2014Q1

REPORT INFORMATION
  Report Type: Spontaneous
  Country: US (occurrence: None)
  Receive Date: 20140306
  Receipt Date: 20140306
  Transmission Date: 20141002
  Serious: Yes (Hospitalization)
  Sender: FDA-Public Use
  Company Number: 163-21880-13040221

PATIENT
  Age: 58 Year
  Sex: Male

DRUGS (1)
  1. REVLIMID (LENALIDOMIDE) (10 MILLIGRAM, CAPSULES) [Suspect]
     Indication: LYMPHOMA
     Dosage: 10MG, 1 IN 1 D, PO
     Route: 048
     Dates: start: 201301

REACTIONS (3)
  - Rash pruritic [None]
  - Pruritus [None]
  - Dyspnoea [None]
